FAERS Safety Report 9632017 (Version 1)
Quarter: 2013Q4

REPORT INFORMATION
  Report Type: Spontaneous
  Country: FR (occurrence: FR)
  Receive Date: 20131018
  Receipt Date: 20131018
  Transmission Date: 20140711
  Serious: Yes (Life-Threatening, Hospitalization)
  Sender: FDA-Public Use
  Company Number: FR-009507513-1310FRA004659

PATIENT
  Age: 71 Year
  Sex: Female

DRUGS (14)
  1. ORGARAN [Suspect]
     Dosage: UNK
     Route: 058
     Dates: start: 20130907, end: 20130912
  2. CALCIPARINE [Suspect]
     Dosage: 1 DF, BID
     Route: 058
     Dates: start: 20130827, end: 20130903
  3. JANUVIA [Concomitant]
  4. METFORMIN HYDROCHLORIDE [Concomitant]
  5. KARDEGIC [Concomitant]
  6. ATENOLOL [Concomitant]
  7. IRBESARTAN [Concomitant]
  8. FUROSEMIDE [Concomitant]
  9. ALLOPURINOL [Concomitant]
  10. GLYBURIDE [Concomitant]
  11. DIFFU-K [Concomitant]
  12. IXPRIM (ACETAMINOPHEN (+) TRAMADOL HYDROCHLORIDE) [Concomitant]
  13. CEBUTID [Concomitant]
  14. FLECTOR [Concomitant]

REACTIONS (3)
  - Jugular vein thrombosis [Unknown]
  - Deep vein thrombosis [Unknown]
  - Heparin-induced thrombocytopenia [Recovered/Resolved]
